FAERS Safety Report 25504237 (Version 1)
Quarter: 2025Q3

REPORT INFORMATION
  Report Type: Spontaneous
  Country: US (occurrence: US)
  Receive Date: 20250702
  Receipt Date: 20250702
  Transmission Date: 20251020
  Serious: No
  Sender: TEVA
  Company Number: US-TEVA-VS-3347996

PATIENT
  Age: 39 Year
  Sex: Female

DRUGS (1)
  1. UZEDY [Suspect]
     Active Substance: RISPERIDONE
     Indication: Schizophrenia
     Route: 065
     Dates: start: 20250201, end: 20250401

REACTIONS (1)
  - Blood prolactin increased [Recovered/Resolved]

NARRATIVE: CASE EVENT DATE: 20250401
